FAERS Safety Report 7249542-4 (Version None)
Quarter: 2011Q1

REPORT INFORMATION
  Report Type: 
  Country: None (occurrence: None)
  Receive Date: 20110128
  Receipt Date: 20110125
  Transmission Date: 20110831
  Serious: Yes (Life-Threatening, Hospitalization)
  Sender: FDA-Public Use
  Company Number: GB-JNJFOC-NSADSS2002028125

PATIENT
  Sex: Male

DRUGS (5)
  1. ATENOLOL [Concomitant]
     Indication: ILL-DEFINED DISORDER
     Route: 048
  2. DILTIAZEM [Concomitant]
     Indication: ILL-DEFINED DISORDER
     Route: 048
  3. ISOSORBIDE MONONITRATE [Concomitant]
     Indication: ILL-DEFINED DISORDER
     Route: 048
  4. MICONAZOLE [Suspect]
     Indication: FUNGAL INFECTION
     Route: 061
  5. WARFARIN SODIUM [Interacting]
     Indication: ATRIAL FIBRILLATION
     Route: 048

REACTIONS (2)
  - DRUG INTERACTION [None]
  - INTERNATIONAL NORMALISED RATIO INCREASED [None]
